FAERS Safety Report 19184172 (Version 4)
Quarter: 2021Q3

REPORT INFORMATION
  Report Type: Spontaneous
  Country: US (occurrence: US)
  Receive Date: 20210427
  Receipt Date: 20210706
  Transmission Date: 20211014
  Serious: Yes (Other)
  Sender: FDA-Public Use
  Company Number: US-PFIZER INC-2021443965

PATIENT
  Age: 74 Year
  Sex: Female

DRUGS (3)
  1. PHOSPHOLINE IODIDE [Suspect]
     Active Substance: ECHOTHIOPHATE IODIDE
     Indication: INTRAOCULAR PRESSURE INCREASED
     Dosage: 1 DROP, DAILY
     Dates: start: 20141128
  2. TRUSOPT [Concomitant]
     Active Substance: DORZOLAMIDE HYDROCHLORIDE
     Dosage: UNK
     Dates: start: 20060213
  3. TRAVATAN Z [Concomitant]
     Active Substance: TRAVOPROST
     Dosage: UNK
     Dates: start: 20090504

REACTIONS (8)
  - Intraocular pressure increased [Unknown]
  - Loss of personal independence in daily activities [Unknown]
  - Altered visual depth perception [Unknown]
  - Illness [Unknown]
  - Drug dependence [Unknown]
  - Gait inability [Unknown]
  - Blindness unilateral [Unknown]
  - Malaise [Unknown]
